FAERS Safety Report 9320416 (Version 2)
Quarter: 2014Q1

REPORT INFORMATION
  Report Type: Spontaneous
  Country: US (occurrence: US)
  Receive Date: 20130530
  Receipt Date: 20140130
  Transmission Date: 20141002
  Serious: Yes (Hospitalization)
  Sender: FDA-Public Use
  Company Number: US-B.I. PHARMACEUTICALS,INC./RIDGEFIELD-2013-BI-14586BP

PATIENT
  Age: 67 Year
  Sex: Male
  Weight: 102.06 kg

DRUGS (7)
  1. PRADAXA [Suspect]
     Indication: ATRIAL FIBRILLATION
     Dosage: 150 MG
     Route: 048
     Dates: start: 20120113, end: 20120113
  2. LISINOPRIL [Concomitant]
     Dosage: 20 MG
     Route: 048
     Dates: start: 2005
  3. ASPIRIN [Concomitant]
     Dosage: 325 MG
     Route: 048
  4. TESTOSTERONE [Concomitant]
     Dosage: 9.5238 MG
     Route: 030
  5. LEVAQUIN [Concomitant]
     Indication: PNEUMONIA
     Dosage: 500 MG
     Route: 048
     Dates: start: 20120113
  6. ATENOLOL [Concomitant]
     Dosage: 50 MG
     Route: 048
  7. ALEVE [Concomitant]
     Indication: ARTHRITIS
     Dosage: 800 MG
     Route: 048

REACTIONS (2)
  - Upper gastrointestinal haemorrhage [Recovered/Resolved]
  - Haemorrhagic anaemia [Unknown]
